FAERS Safety Report 16485829 (Version 2)
Quarter: 2019Q2

REPORT INFORMATION
  Report Type: Spontaneous
  Country: ES (occurrence: ES)
  Receive Date: 20190627
  Receipt Date: 20190628
  Transmission Date: 20190711
  Serious: Yes (Hospitalization)
  Sender: FDA-Public Use
  Company Number: IND-ES-009507513-1906ESP007288

PATIENT
  Age: 87 Year
  Sex: Female

DRUGS (9)
  1. TRIGON DEPOT [Concomitant]
     Active Substance: TRIAMCINOLONE ACETONIDE
     Indication: BURSITIS
     Dosage: 1 AMPOULE DAILY FOR 1 DAY
     Route: 030
     Dates: start: 20180404, end: 20180404
  2. URBASON [Concomitant]
     Active Substance: METHYLPREDNISOLONE
     Indication: BURSITIS
     Dosage: 1 VIAL INTRAMUSCULAR
     Route: 030
     Dates: start: 20180415, end: 20180415
  3. ACOXXEL 60 MG COMPRIMIDOS RECUBIERTOS CON PEL?CULA [Suspect]
     Active Substance: ETORICOXIB
     Indication: ARTHRALGIA
     Dosage: 1 TABLET DAILY
     Route: 048
     Dates: start: 20180323, end: 20180507
  4. HIDROFEROL [Concomitant]
     Active Substance: CALCIFEDIOL
     Indication: OSTEOPOROSIS
     Dosage: 1 DRINKABLE AMPOULE EVERY 30 DAYS
     Route: 048
     Dates: start: 20121022, end: 20190304
  5. PAZITAL (ACETAMINOPHEN (+) TRAMADOL HYDROCHLORIDE) [Concomitant]
     Indication: BURSITIS
     Dosage: 1 TABLET EVERY 8 HOURS FOR 10 DAYS
     Route: 048
     Dates: start: 20180415, end: 20180418
  6. HYDROCHLOROTHIAZIDE (+) LOSARTAN POTASSIUM [Concomitant]
     Active Substance: HYDROCHLOROTHIAZIDE\LOSARTAN POTASSIUM
     Indication: HYPERTENSION
     Dosage: 1 TABLET DAILY
     Dates: start: 20121022
  7. ACETAMINOPHEN (+) TRAMADOL HYDROCHLORIDE [Concomitant]
     Active Substance: ACETAMINOPHEN\TRAMADOL HYDROCHLORIDE
     Indication: BURSITIS
     Dosage: 1 TABLET EVERY 8 HOURS FOR 10 DAYS
     Route: 048
     Dates: start: 20180418, end: 20180427
  8. DOLOCATIL [Concomitant]
     Active Substance: ACETAMINOPHEN
     Indication: ARTHRALGIA
     Dosage: 1 TABLET EVERY 8 HOURS FOR 10 DAYS
     Route: 048
     Dates: start: 20180314, end: 20180413
  9. ACOXXEL 30 MG FILM-COATED TABLETS [Suspect]
     Active Substance: ETORICOXIB
     Indication: ARTHRALGIA
     Dosage: 1 TABLET DAILY
     Route: 048
     Dates: start: 20180314, end: 20180320

REACTIONS (1)
  - Small intestinal haemorrhage [Recovered/Resolved]

NARRATIVE: CASE EVENT DATE: 20180422
